FAERS Safety Report 7026629-2 (Version None)
Quarter: 2010Q4

REPORT INFORMATION
  Report Type: 
  Country: None (occurrence: None)
  Receive Date: 20101004
  Receipt Date: 20100924
  Transmission Date: 20110411
  Serious: Yes (Disabling, Other)
  Sender: FDA-Public Use
  Company Number: JP-JNJFOC-20100903543

PATIENT
  Sex: Female
  Weight: 57 kg

DRUGS (27)
  1. DOXIL [Suspect]
     Indication: OVARIAN CANCER RECURRENT
     Dosage: CYCLE 2
     Route: 042
  2. DOXIL [Suspect]
     Dosage: CYCLE 1
     Route: 042
  3. DOXIL [Suspect]
     Dosage: CYCLE 3
     Route: 042
  4. DOXIL [Suspect]
     Dosage: CYCLE 5
     Route: 042
  5. DOXIL [Suspect]
     Dosage: CYCLE 6
     Route: 042
  6. DOXIL [Suspect]
     Dosage: CYCLE 7
     Route: 042
  7. DOXIL [Suspect]
     Dosage: CYCLE 8
     Route: 042
  8. DOXIL [Suspect]
     Dosage: CYCLE 4
     Route: 042
  9. RINDERON [Concomitant]
     Indication: PROPHYLAXIS
     Route: 048
  10. RINDERON [Concomitant]
     Route: 048
  11. RINDERON [Concomitant]
     Route: 048
  12. RINDERON [Concomitant]
     Route: 048
  13. RINDERON [Concomitant]
     Route: 048
  14. RINDERON [Concomitant]
     Route: 048
  15. ZYLORIC [Concomitant]
     Indication: PROPHYLAXIS
     Route: 048
  16. ZYLORIC [Concomitant]
     Route: 048
  17. ZYLORIC [Concomitant]
     Route: 048
  18. ZYLORIC [Concomitant]
     Route: 048
  19. ZYLORIC [Concomitant]
     Route: 048
  20. ZYLORIC [Concomitant]
     Route: 048
  21. HACHIAZULE [Concomitant]
     Indication: PROPHYLAXIS
     Route: 049
  22. DESPA [Concomitant]
     Indication: STOMATITIS
     Route: 048
  23. DERMOVATE [Concomitant]
     Indication: RASH
     Route: 061
  24. KETOPROFEN [Concomitant]
     Indication: BACK PAIN
     Route: 003
  25. VALTREX [Concomitant]
     Indication: HERPES ZOSTER
     Route: 048
  26. WHITE PETROLATUM [Concomitant]
     Indication: HERPES ZOSTER
     Route: 065
  27. SHAKUYAKUKANZOUTOU [Concomitant]
     Indication: BACK PAIN
     Route: 048

REACTIONS (2)
  - MYELODYSPLASTIC SYNDROME [None]
  - PLATELET COUNT DECREASED [None]
